FAERS Safety Report 4362227-7 (Version None)
Quarter: 2004Q2

REPORT INFORMATION
  Report Type: 
  Country: None (occurrence: None)
  Receive Date: 20040518
  Receipt Date: 20040506
  Transmission Date: 20050107
  Serious: Yes (Hospitalization)
  Sender: FDA-Public Use
  Company Number: 2004212347US

PATIENT
  Age: 60 Year
  Sex: Female

DRUGS (2)
  1. CELEBREX [Suspect]
     Dosage: ORAL
     Route: 048
  2. LEVOFLOXACIN [Concomitant]

REACTIONS (15)
  - ARTHRALGIA [None]
  - BLOOD PRESSURE INCREASED [None]
  - DRUG TOXICITY [None]
  - DYSPNOEA EXERTIONAL [None]
  - EJECTION FRACTION DECREASED [None]
  - EOSINOPHILIC PNEUMONIA ACUTE [None]
  - HYPERHIDROSIS [None]
  - LUNG INFILTRATION [None]
  - OSTEOARTHRITIS [None]
  - PLEURAL EFFUSION [None]
  - PNEUMONITIS [None]
  - PULMONARY OEDEMA [None]
  - PULMONARY TOXICITY [None]
  - RESPIRATORY FAILURE [None]
  - VENTRICULAR HYPERTROPHY [None]
